FAERS Safety Report 9009371 (Version 2)
Quarter: 2013Q1

REPORT INFORMATION
  Report Type: Spontaneous
  Country: US (occurrence: US)
  Receive Date: 20130111
  Receipt Date: 20130214
  Transmission Date: 20140127
  Serious: No
  Sender: FDA-Public Use
  Company Number: US-PFIZER INC-2013012877

PATIENT
  Age: 51 Year
  Sex: Male

DRUGS (10)
  1. NEURONTIN [Suspect]
     Indication: PAIN
     Dosage: 250MG/5ML, SIX TIMES DAILY
     Route: 048
     Dates: start: 20060102
  2. ALLOPURINOL [Concomitant]
     Dosage: UNK
  3. ARIXTRA [Concomitant]
     Dosage: UNK
  4. ACETYLSALICYLIC ACID [Concomitant]
     Dosage: UNK
  5. LASIX [Concomitant]
     Dosage: UNK
  6. LISINOPRIL [Concomitant]
     Dosage: UNK
  7. METOPROLOL [Concomitant]
     Dosage: UNK
  8. SIMVASTATIN [Concomitant]
     Dosage: UNK
  9. TOPIRAMATE [Concomitant]
     Dosage: UNK
  10. MINOCYCLINE [Concomitant]
     Dosage: UNK

REACTIONS (1)
  - Nasopharyngitis [Recovering/Resolving]
